FAERS Safety Report 4932442-X (Version None)
Quarter: 2006Q1

REPORT INFORMATION
  Report Type: 
  Country: None (occurrence: None)
  Receive Date: 20060224
  Receipt Date: 20060215
  Transmission Date: 20060701
  Serious: Yes (Life-Threatening, Hospitalization)
  Sender: FDA-Public Use
  Company Number: HQWYE838916FEB06

PATIENT
  Age: 35 Year
  Sex: Male

DRUGS (1)
  1. RHINADVIL (IBUPROFEN/PSEUDOEPHEDRINE HYDROCHLORIDE, TABLET) [Suspect]
     Indication: RHINITIS
     Dosage: 2 TABLETS IN THE MORNING, ONE TABLET AT 12:00 PM; AND ONE TABLET AT 3:00 PM; ORAL
     Route: 048
     Dates: start: 20060107, end: 20060107

REACTIONS (3)
  - DEPRESSED LEVEL OF CONSCIOUSNESS [None]
  - MYOCARDIAL INFARCTION [None]
  - VENTRICULAR FIBRILLATION [None]
